FAERS Safety Report 4459179-8 (Version None)
Quarter: 2004Q3

REPORT INFORMATION
  Report Type: 
  Country: None (occurrence: None)
  Receive Date: 20040920
  Receipt Date: 20040920
  Transmission Date: 20050211
  Serious: No
  Sender: FDA-Public Use
  Company Number: None

PATIENT
  Sex: Female

DRUGS (1)
  1. LOVENOX [Suspect]
     Indication: DEEP VENOUS THROMBOSIS PROPHYLAXIS
     Dosage: 30 MG Q12 HOURS SQ
     Route: 058
     Dates: start: 20040803, end: 20040803

REACTIONS (3)
  - LOCALISED OEDEMA [None]
  - PRURITUS [None]
  - SWELLING FACE [None]
